FAERS Safety Report 7932971-0 (Version None)
Quarter: 2011Q4

REPORT INFORMATION
  Report Type: 
  Country: None (occurrence: None)
  Receive Date: 20111122
  Receipt Date: 20111116
  Transmission Date: 20120403
  Serious: Yes (Death, Life-Threatening)
  Sender: FDA-Public Use
  Company Number: PHHY2011JP88942

PATIENT
  Sex: Male
  Weight: 55 kg

DRUGS (3)
  1. DIOVAN [Suspect]
     Dosage: 40 MG, UNK
     Route: 048
  2. CARVEDILOL [Concomitant]
     Indication: HYPERTENSION
     Dosage: 10 MG,
     Route: 048
     Dates: start: 20071214
  3. ALISKIREN [Suspect]
     Indication: HYPERTENSION
     Dosage: 150 MG, QD
     Route: 048
     Dates: start: 20101224

REACTIONS (7)
  - OXYGEN SATURATION DECREASED [None]
  - PHOTOSENSITIVITY REACTION [None]
  - WHEEZING [None]
  - HAEMOPTYSIS [None]
  - PYREXIA [None]
  - PNEUMONIA [None]
  - RESPIRATORY FAILURE [None]
